FAERS Safety Report 9802707 (Version 3)
Quarter: 2014Q1

REPORT INFORMATION
  Report Type: Spontaneous
  Country: US (occurrence: US)
  Receive Date: 20140108
  Receipt Date: 20140318
  Transmission Date: 20141002
  Serious: No
  Sender: FDA-Public Use
  Company Number: US-009507513-1312USA006778

PATIENT
  Age: 57 Year
  Sex: Male

DRUGS (4)
  1. PEGINTRON [Suspect]
     Indication: HEPATITIS C
     Dosage: 150MCG ONCE WEEKLY
     Dates: start: 20131120
  2. PEGINTRON [Suspect]
     Dosage: REDIPEN, STRENGTH: 150 MCG/0.5CC, 0.4 CC DOSE, QW(ONCE A WEEK)
     Route: 058
     Dates: start: 20131126, end: 20140218
  3. REBETOL [Suspect]
     Indication: HEPATITIS C
     Dosage: THREE OF THE 200 MG CAPSULES (600 MG) TWICE DAILY
     Route: 048
  4. RIBASPHERE [Suspect]
     Indication: HEPATITIS C
     Dosage: 3 AM AND PM, BID(TWICE A DAY)
     Route: 048
     Dates: start: 20131126

REACTIONS (11)
  - Burning sensation [Unknown]
  - Abnormal dreams [Not Recovered/Not Resolved]
  - Pain [Not Recovered/Not Resolved]
  - Nausea [Not Recovered/Not Resolved]
  - Headache [Not Recovered/Not Resolved]
  - Fatigue [Not Recovered/Not Resolved]
  - Vomiting [Not Recovered/Not Resolved]
  - Anaemia [Unknown]
  - Dizziness [Unknown]
  - Vomiting [Unknown]
  - Weight decreased [Unknown]
